FAERS Safety Report 17257725 (Version 1)
Quarter: 2020Q1

REPORT INFORMATION
  Report Type: Spontaneous
  Country: US (occurrence: US)
  Receive Date: 20200110
  Receipt Date: 20200110
  Transmission Date: 20200409
  Serious: No
  Sender: FDA-Public Use
  Company Number: US-009507513-2001USA002163

PATIENT
  Sex: Female

DRUGS (1)
  1. HYZAAR [Suspect]
     Active Substance: HYDROCHLOROTHIAZIDE\LOSARTAN POTASSIUM
     Route: 048

REACTIONS (2)
  - Drug ineffective [Unknown]
  - Insurance issue [Unknown]

NARRATIVE: CASE EVENT DATE: 20191009
